FAERS Safety Report 20115303 (Version 11)
Quarter: 2023Q1

REPORT INFORMATION
  Report Type: Report from Study
  Country: ES (occurrence: ES)
  Receive Date: 20211125
  Receipt Date: 20230315
  Transmission Date: 20230417
  Serious: Yes (Hospitalization)
  Sender: FDA-Public Use
  Company Number: ES-AMGEN-ESPCT2021185944

PATIENT
  Age: 10 Year
  Sex: Female

DRUGS (23)
  1. CARFILZOMIB [Suspect]
     Active Substance: CARFILZOMIB
     Indication: Acute lymphocytic leukaemia
     Dosage: 79.52 MILLIGRAM
     Route: 040
     Dates: start: 20210927
  2. VINCRISTINE [Suspect]
     Active Substance: VINCRISTINE
     Indication: Acute lymphocytic leukaemia
     Dosage: 2 MILLIGRAM
     Route: 065
     Dates: start: 20211018, end: 20211018
  3. DAUNORUBICIN [Suspect]
     Active Substance: DAUNORUBICIN
     Indication: Acute lymphocytic leukaemia
     Dosage: 35.25 MILLIGRAM
     Route: 065
     Dates: start: 20211018
  4. MERCAPTOPURINE [Suspect]
     Active Substance: MERCAPTOPURINE
     Indication: Acute lymphocytic leukaemia
     Dosage: 85 MILLIGRAM
     Route: 065
     Dates: start: 20211116, end: 20211120
  5. CYTARABINE [Suspect]
     Active Substance: CYTARABINE
     Indication: Acute lymphocytic leukaemia
     Dosage: 106.5 MILLIGRAM
     Route: 042
     Dates: start: 20211116, end: 20211119
  6. CYCLOPHOSPHAMIDE [Suspect]
     Active Substance: CYCLOPHOSPHAMIDE
     Indication: Acute lymphocytic leukaemia
     Dosage: 1420 MILLIGRAM
     Route: 065
     Dates: start: 20211116, end: 20211116
  7. METHOTREXATE [Suspect]
     Active Substance: METHOTREXATE
     Indication: Acute lymphocytic leukaemia
     Dosage: 12 MILLIGRAM
     Route: 029
     Dates: start: 20211116, end: 20211116
  8. DEXAMETHASONE [Suspect]
     Active Substance: DEXAMETHASONE
     Indication: Acute lymphocytic leukaemia
     Dosage: UNK
     Route: 065
  9. PEG/L-ASPARAGINASE [Suspect]
     Active Substance: PEGASPARGASE
     Indication: Acute lymphocytic leukaemia
     Dosage: UNK
     Route: 065
  10. ONDANSETRON [Concomitant]
     Active Substance: ONDANSETRON
     Dosage: 6 MILLIGRAM
     Route: 042
     Dates: start: 20210927, end: 20211110
  11. ACETAMINOPHEN [Concomitant]
     Active Substance: ACETAMINOPHEN
     Dosage: 450 MILLIGRAM
     Route: 042
     Dates: start: 20210920, end: 20211120
  12. METAMIZOLE [Concomitant]
     Active Substance: METAMIZOLE
     Dosage: 1.8 GRAM
     Route: 042
     Dates: start: 20210920, end: 20211120
  13. RANITIDINE [Concomitant]
     Active Substance: RANITIDINE
     Dosage: 50 MILLIGRAM
     Route: 042
     Dates: start: 20210927, end: 20211022
  14. SULFAMETHOXAZOLE\TRIMETHOPRIM [Concomitant]
     Active Substance: SULFAMETHOXAZOLE\TRIMETHOPRIM
     Dosage: 100-120 MILLIGRAM
     Dates: start: 20210920
  15. MICAFUNGIN [Concomitant]
     Active Substance: MICAFUNGIN
     Dosage: 45 MILLIGRAM
     Route: 042
     Dates: start: 20210920, end: 20211022
  16. ACYCLOVIR [Concomitant]
     Active Substance: ACYCLOVIR
     Dosage: 335-600 MILLIGRAM
     Dates: start: 20210920
  17. AMPHOTERICIN B [Concomitant]
     Active Substance: AMPHOTERICIN B
     Dosage: 2.5 MILLIGRAM/KILOGRAM, 120 MILLIGRAM
     Dates: start: 20211022
  18. FUROSEMIDE [Concomitant]
     Active Substance: FUROSEMIDE
     Dosage: 20 MILLIGRAM
     Route: 042
     Dates: start: 20211004, end: 20211120
  19. POTASSIUM CHLORIDE [Concomitant]
     Active Substance: POTASSIUM CHLORIDE
     Dosage: 600 MILLIGRAM
     Route: 048
     Dates: start: 20211109
  20. AZITHROMYCIN [Concomitant]
     Active Substance: AZITHROMYCIN
     Dosage: 500 MILLIGRAM
     Route: 048
     Dates: start: 20211112, end: 20211116
  21. METHOTREXATE [Concomitant]
     Active Substance: METHOTREXATE
     Dosage: 12 MILLIGRAM
     Dates: start: 20211116, end: 20211116
  22. CYTARABINE [Concomitant]
     Active Substance: CYTARABINE
     Dosage: 106.5 MILLIGRAM
     Route: 042
     Dates: start: 20211116, end: 20211119
  23. MERCAPTOPURINE [Concomitant]
     Active Substance: MERCAPTOPURINE
     Dates: start: 20211116, end: 20211120

REACTIONS (1)
  - Tumour lysis syndrome [Recovered/Resolved]

NARRATIVE: CASE EVENT DATE: 20211117
